FAERS Safety Report 17700076 (Version 1)
Quarter: 2020Q2

REPORT INFORMATION
  Report Type: Spontaneous
  Country: US (occurrence: US)
  Receive Date: 20200423
  Receipt Date: 20200423
  Transmission Date: 20200714
  Serious: No
  Sender: FDA-Public Use
  Company Number: US-ASTELLAS-2020US002410

PATIENT
  Age: 64 Year
  Sex: Female

DRUGS (4)
  1. LEXISCAN [Suspect]
     Active Substance: REGADENOSON
     Indication: CARDIAC STRESS TEST
     Dosage: 0.4 MG/10 ML, TOTAL DOSE (1 TIME)
     Route: 065
     Dates: start: 20200114, end: 20200115
  2. LEXISCAN [Suspect]
     Active Substance: REGADENOSON
     Indication: CARDIAC STRESS TEST
     Dosage: 0.4 MG/10 ML, TOTAL DOSE (1 TIME)
     Route: 065
     Dates: start: 20200114, end: 20200115
  3. LEXISCAN [Suspect]
     Active Substance: REGADENOSON
     Indication: CARDIAC STRESS TEST
     Dosage: 0.4 MG/10 ML, TOTAL DOSE (1 TIME)
     Route: 065
     Dates: start: 20200114, end: 20200115
  4. LEXISCAN [Suspect]
     Active Substance: REGADENOSON
     Indication: CARDIAC STRESS TEST
     Dosage: 0.4 MG/10 ML, TOTAL DOSE (1 TIME)
     Route: 065
     Dates: start: 20200114, end: 20200115

REACTIONS (5)
  - Swelling [Recovering/Resolving]
  - Erythema [Recovering/Resolving]
  - Gait disturbance [Recovering/Resolving]
  - Rash [Recovered/Resolved]
  - Oedema peripheral [Recovered/Resolved]

NARRATIVE: CASE EVENT DATE: 20200114
